FAERS Safety Report 20898209 (Version 1)
Quarter: 2022Q2

REPORT INFORMATION
  Report Type: Spontaneous
  Country: US (occurrence: US)
  Receive Date: 20220531
  Receipt Date: 20220531
  Transmission Date: 20220721
  Serious: No
  Sender: FDA-Public Use
  Company Number: US-GLENMARK PHARMACEUTICALS-2022GMK071178

PATIENT

DRUGS (2)
  1. ASPIRIN\DIPYRIDAMOLE [Suspect]
     Active Substance: ASPIRIN\DIPYRIDAMOLE
     Indication: Anticoagulant therapy
     Dosage: UNK
     Route: 048
  2. ASPIRIN\DIPYRIDAMOLE [Suspect]
     Active Substance: ASPIRIN\DIPYRIDAMOLE
     Dosage: UNK
     Route: 048
     Dates: start: 2022

REACTIONS (3)
  - Ill-defined disorder [Unknown]
  - Product physical issue [Unknown]
  - Product commingling [Unknown]

NARRATIVE: CASE EVENT DATE: 20220101
